FAERS Safety Report 8865546 (Version 1)
Quarter: 2012Q4

REPORT INFORMATION
  Report Type: 
  Country: US (occurrence: US)
  Receive Date: 20121024
  Receipt Date: 20121024
  Transmission Date: 20130627
  Serious: No
  Sender: FDA-Public Use
  Company Number: US-AMGEN-USASP2012003646

PATIENT
  Sex: Male
  Weight: 88.44 kg

DRUGS (12)
  1. ENBREL [Suspect]
     Indication: PRODUCT USED FOR UNKNOWN INDICATION
     Dosage: 50 mg, qwk
     Route: 058
  2. FLOMAX                             /00889901/ [Concomitant]
     Dosage: 0.4 mg, UNK
  3. PROPECIA [Concomitant]
     Dosage: 1 mg, UNK
  4. FOLIC ACID [Concomitant]
     Dosage: 800 mug, UNK
  5. PRILOSEC                           /00661201/ [Concomitant]
     Dosage: 20 mg, UNK
  6. VITAMIN C                          /00008001/ [Concomitant]
     Dosage: 500 mg, UNK
  7. AZOR                               /00595201/ [Concomitant]
  8. CALCIUM [Concomitant]
     Dosage: 500 mg, UNK
  9. MULTIVITAMIN                       /00097801/ [Concomitant]
  10. ALENDRONATE [Concomitant]
     Dosage: 70 mg, UNK
  11. METHOTREXATE [Concomitant]
     Dosage: 2.5 mg, UNK
  12. CELEBREX [Concomitant]
     Dosage: 50 mg, UNK

REACTIONS (1)
  - Nasopharyngitis [Unknown]
